FAERS Safety Report 8337683-X (Version None)
Quarter: 2012Q2

REPORT INFORMATION
  Report Type: 
  Country: None (occurrence: None)
  Receive Date: 20120504
  Receipt Date: 20120421
  Transmission Date: 20120825
  Serious: Yes (Life-Threatening)
  Sender: FDA-Public Use
  Company Number: CA-ROCHE-1065542

PATIENT
  Age: 48 Year
  Sex: Female
  Weight: 70 kg

DRUGS (2)
  1. ACTIVASE [Suspect]
     Indication: CEREBRAL INFARCTION
     Dosage: DOSE: 5MG IV; 45ML IV DROP
     Route: 042
     Dates: start: 20120414, end: 20120414
  2. NITROGLYCERIN [Suspect]
     Indication: CEREBRAL INFARCTION
     Dosage: DOSE: 20MG/ 10 D/ MIN
     Dates: start: 20120414, end: 20120414

REACTIONS (5)
  - CHEST DISCOMFORT [None]
  - SHOCK [None]
  - SUFFOCATION FEELING [None]
  - BLOOD PRESSURE IMMEASURABLE [None]
  - HYPERHIDROSIS [None]
